FAERS Safety Report 8819001 (Version 1)
Quarter: 2012Q4

REPORT INFORMATION
  Report Type: 
  Country: SE (occurrence: SE)
  Receive Date: 20121001
  Receipt Date: 20121001
  Transmission Date: 20130627
  Serious: Yes (Other)
  Sender: FDA-Public Use
  Company Number: SE-JNJFOC-20120911310

PATIENT
  Age: 54 Year
  Sex: Male

DRUGS (2)
  1. REMICADE [Suspect]
     Indication: ANKYLOSING SPONDYLITIS
     Route: 042
     Dates: start: 20111115, end: 20111201
  2. PREDNISOLONE [Concomitant]
     Route: 065

REACTIONS (4)
  - Neuropathy peripheral [Unknown]
  - Diaphragmatic paralysis [Unknown]
  - Dyspnoea [Unknown]
  - Asthenia [Unknown]
